FAERS Safety Report 9344698 (Version 1)
Quarter: 2013Q2

REPORT INFORMATION
  Report Type: Spontaneous
  Country: US (occurrence: None)
  Receive Date: 20130611
  Receipt Date: 20130611
  Transmission Date: 20140414
  Serious: No
  Sender: FDA-Public Use
  Company Number: None

PATIENT
  Sex: 0

DRUGS (1)
  1. EPINEPHRINE [Suspect]
     Dosage: 1:1000 - 1 MG/ML

REACTIONS (1)
  - Drug effect decreased [None]
